APPROVED DRUG PRODUCT: METOPROLOL TARTRATE
Active Ingredient: METOPROLOL TARTRATE
Strength: 1MG/ML
Dosage Form/Route: INJECTABLE;INJECTION
Application: A076495 | Product #001 | TE Code: AP
Applicant: HIKMA PHARMACEUTICALS USA INC
Approved: Jul 7, 2003 | RLD: No | RS: No | Type: RX